FAERS Safety Report 9931581 (Version 1)
Quarter: 2014Q1

REPORT INFORMATION
  Report Type: Spontaneous
  Country: IT (occurrence: None)
  Receive Date: 20140224
  Receipt Date: 20140224
  Transmission Date: 20141002
  Serious: No
  Sender: FDA-Public Use
  Company Number: 2014IT010322

PATIENT
  Age: 46 Year
  Sex: Male

DRUGS (1)
  1. ALOXI [Suspect]
     Indication: PROPHYLAXIS OF NAUSEA AND VOMITING
     Dosage: SINGLE
     Route: 042
     Dates: start: 20140113, end: 20140113

REACTIONS (6)
  - Drug hypersensitivity [None]
  - Bradycardia [None]
  - Hyperhidrosis [None]
  - Hypotension [None]
  - Restlessness [None]
  - Infusion related reaction [None]
